FAERS Safety Report 8699827 (Version 6)
Quarter: 2013Q3

REPORT INFORMATION
  Report Type: Spontaneous
  Country: US (occurrence: US)
  Receive Date: 20120802
  Receipt Date: 20130923
  Transmission Date: 20140515
  Serious: Yes (Hospitalization, Other)
  Sender: FDA-Public Use
  Company Number: US-009507513-1207USA009299

PATIENT
  Sex: Female
  Weight: 48.73 kg

DRUGS (7)
  1. FOSAMAX [Suspect]
     Indication: OSTEOPOROSIS
     Dosage: 10 MG, QD
     Route: 048
     Dates: start: 20001003
  2. FOSAMAX [Suspect]
     Dosage: 70 MG, QW
     Route: 048
  3. ALENDRONATE SODIUM [Suspect]
     Indication: OSTEOPOROSIS
     Dosage: 70 MG, QW
     Route: 048
     Dates: start: 200803, end: 200910
  4. VITAMINS (UNSPECIFIED) [Concomitant]
     Dosage: 400 MG, QD
     Dates: start: 1992
  5. VITAMIN D (UNSPECIFIED) [Concomitant]
     Dosage: 400 MG, QD-50000 IU Q2W
     Dates: start: 1992
  6. PERCOCET [Concomitant]
     Indication: ARTHRALGIA
     Dosage: 2.5-325 MG PRN
     Route: 048
     Dates: start: 20000911
  7. DOXEPIN HYDROCHLORIDE [Concomitant]
     Indication: DEPRESSION
     Dosage: 10-50 MG QD
     Route: 048
     Dates: start: 20000822, end: 20050328

REACTIONS (44)
  - Intramedullary rod insertion [Unknown]
  - Spinal fusion surgery [Unknown]
  - Spinal laminectomy [Unknown]
  - Spinal nerve stimulator implantation [Unknown]
  - Surgery [Unknown]
  - Hip fracture [Unknown]
  - Femur fracture [Unknown]
  - Vitamin D deficiency [Unknown]
  - Barrett^s oesophagus [Unknown]
  - Foot fracture [Unknown]
  - Hypokalaemia [Unknown]
  - Cervical spinal stenosis [Unknown]
  - Radiculopathy [Unknown]
  - Fibromyalgia [Unknown]
  - Anxiety [Unknown]
  - Irritable bowel syndrome [Unknown]
  - Head injury [Unknown]
  - Urinary tract infection [Unknown]
  - Haematoma [Unknown]
  - Wrist fracture [Unknown]
  - Oestrogen deficiency [Unknown]
  - Fall [Unknown]
  - Hyperparathyroidism secondary [Unknown]
  - Neuritis [Unknown]
  - Tarsal tunnel syndrome [Unknown]
  - Neuralgia [Unknown]
  - Intervertebral disc degeneration [Unknown]
  - Procedural haemorrhage [Unknown]
  - Sinus tachycardia [Recovered/Resolved]
  - Hypokalaemia [Unknown]
  - Atrial fibrillation [Unknown]
  - Wrist surgery [Unknown]
  - Renal impairment [Unknown]
  - Macular degeneration [Unknown]
  - Pain [Unknown]
  - Spondylolisthesis [Unknown]
  - Myositis [Unknown]
  - Hyperlipidaemia [Unknown]
  - Osteoarthritis [Unknown]
  - Myalgia [Unknown]
  - Nausea [Unknown]
  - Gastrooesophageal reflux disease [Unknown]
  - Arthralgia [Unknown]
  - Back pain [Not Recovered/Not Resolved]
